FAERS Safety Report 12840319 (Version 1)
Quarter: 2016Q4

REPORT INFORMATION
  Report Type: Spontaneous
  Country: None (occurrence: IT)
  Receive Date: 20161012
  Receipt Date: 20161012
  Transmission Date: 20170207
  Serious: Yes (Hospitalization)
  Sender: FDA-Public Use
  Company Number: IT-TEVA-700695ISR

PATIENT
  Age: 84 Year
  Sex: Female

DRUGS (2)
  1. INDOBUFENE [Concomitant]
     Route: 065
  2. IBUPROFEN. [Suspect]
     Active Substance: IBUPROFEN
     Indication: ANALGESIC THERAPY
     Dosage: 400 MILLIGRAM DAILY;
     Route: 065
     Dates: start: 20160315, end: 20160330

REACTIONS (5)
  - Gastritis [Recovering/Resolving]
  - Gastric haemorrhage [Recovering/Resolving]
  - Duodenitis [Recovering/Resolving]
  - Nausea [Recovering/Resolving]
  - Vomiting [Recovering/Resolving]

NARRATIVE: CASE EVENT DATE: 20160331
